FAERS Safety Report 18658914 (Version 1)
Quarter: 2020Q4

REPORT INFORMATION
  Report Type: Spontaneous
  Country: DE (occurrence: DE)
  Receive Date: 20201223
  Receipt Date: 20201223
  Transmission Date: 20210114
  Serious: Yes (Hospitalization, Other)
  Sender: FDA-Public Use
  Company Number: DE-ALLERGAN-2049469US

PATIENT
  Sex: Female
  Weight: 54 kg

DRUGS (3)
  1. FEXOFENADINA [Concomitant]
     Indication: URTICARIA
     Dosage: 180 MG
     Dates: start: 202010, end: 202010
  2. OMEPRAZOL [Concomitant]
     Active Substance: OMEPRAZOLE
     Dosage: DAILY DOSE: 40 MG MILLGRAM(S) EVERY DAYS 2 SEPARATED DOSES
  3. PYLERA [Suspect]
     Active Substance: BISMUTH SUBCITRATE POTASSIUM\METRONIDAZOLE\TETRACYCLINE HYDROCHLORIDE
     Indication: HELICOBACTER INFECTION
     Dosage: DAILY DOSE: 12 DF DOSAGE FORM EVERY DAYS 4 SEPARATED DOSES
     Route: 048
     Dates: start: 20201019, end: 20201029

REACTIONS (1)
  - Hepatitis acute [Unknown]

NARRATIVE: CASE EVENT DATE: 20201110
